FAERS Safety Report 6371315-5 (Version None)
Quarter: 2009Q3

REPORT INFORMATION
  Report Type: 
  Country: None (occurrence: None)
  Receive Date: 20090923
  Receipt Date: 20090915
  Transmission Date: 20100115
  Serious: Yes (Other)
  Sender: FDA-Public Use
  Company Number: TR-JNJFOC-20090904698

PATIENT
  Age: 44 Year
  Sex: Male

DRUGS (4)
  1. HALOPERIDOL [Suspect]
     Indication: BIPOLAR DISORDER
     Route: 065
  2. OLANZAPINE [Concomitant]
     Route: 030
  3. OLANZAPINE [Concomitant]
     Route: 030
  4. OLANZAPINE [Concomitant]
     Route: 030

REACTIONS (2)
  - DELUSION [None]
  - EXTRAPYRAMIDAL DISORDER [None]
